FAERS Safety Report 6453604-9 (Version None)
Quarter: 2009Q4

REPORT INFORMATION
  Report Type: 
  Country: None (occurrence: None)
  Receive Date: 20091124
  Receipt Date: 20091117
  Transmission Date: 20100525
  Serious: Yes (Other)
  Sender: FDA-Public Use
  Company Number: US-RB-020047-09

PATIENT
  Age: 49 Year
  Sex: Female

DRUGS (1)
  1. SUBUTEX [Suspect]
     Indication: DRUG USE FOR UNKNOWN INDICATION
     Dosage: DOSING DETAILS UNKNOWN
     Route: 065

REACTIONS (4)
  - ANXIETY [None]
  - DEPRESSION [None]
  - HALLUCINATIONS, MIXED [None]
  - SUICIDAL IDEATION [None]
